FAERS Safety Report 25270963 (Version 1)
Quarter: 2025Q2

REPORT INFORMATION
  Report Type: Spontaneous
  Country: GB (occurrence: GB)
  Receive Date: 20250506
  Receipt Date: 20250506
  Transmission Date: 20250716
  Serious: Yes (Other)
  Sender: TEVA
  Company Number: None

PATIENT
  Age: 70 Year
  Sex: Female
  Weight: 60 kg

DRUGS (3)
  1. LANSOPRAZOLE [Suspect]
     Active Substance: LANSOPRAZOLE
     Indication: Toothache
     Dosage: CLARITHROMYCIN AND LANSOPRAZOLE AND METRONIDAZOLE
     Route: 065
     Dates: start: 20250429, end: 20250430
  2. METRONIDAZOLE [Suspect]
     Active Substance: METRONIDAZOLE
     Indication: Toothache
     Dosage: CLARITHROMYCIN AND LANSOPRAZOLE AND METRONIDAZOLE
     Route: 065
     Dates: start: 20250429, end: 20250430
  3. CLARITHROMYCIN [Suspect]
     Active Substance: CLARITHROMYCIN
     Indication: Toothache
     Dosage: CLARITHROMYCIN AND LANSOPRAZOLE AND METRONIDAZOLE
     Route: 065
     Dates: start: 20250429, end: 20250430

REACTIONS (6)
  - Eye inflammation [Recovering/Resolving]
  - Influenza like illness [Recovering/Resolving]
  - Neck pain [Recovering/Resolving]
  - Malaise [Recovering/Resolving]
  - Headache [Recovering/Resolving]
  - Somnolence [Recovering/Resolving]

NARRATIVE: CASE EVENT DATE: 20250429
